FAERS Safety Report 5354004-5 (Version None)
Quarter: 2007Q2

REPORT INFORMATION
  Report Type: 
  Country: None (occurrence: None)
  Receive Date: 20070608
  Receipt Date: 20070608
  Transmission Date: 20071010
  Serious: Yes (Death, Life-Threatening, Hospitalization)
  Sender: FDA-Public Use
  Company Number: None

PATIENT
  Age: 72 Year
  Sex: Male

DRUGS (5)
  1. WARFARIN SODIUM [Suspect]
     Indication: DEEP VEIN THROMBOSIS
     Dosage: UNKNOWN PO
     Route: 048
  2. ASPIRIN [Suspect]
     Indication: CORONARY ARTERY DISEASE
     Dosage: UNKNOWN
  3. INSULIN [Concomitant]
  4. VALIUM [Concomitant]
  5. DIGOXIN [Concomitant]

REACTIONS (3)
  - COMA [None]
  - HAEMORRHAGE INTRACRANIAL [None]
  - INTRAVENTRICULAR HAEMORRHAGE [None]
